FAERS Safety Report 4866355-9 (Version None)
Quarter: 2005Q4

REPORT INFORMATION
  Report Type: 
  Country: None (occurrence: None)
  Receive Date: 20051227
  Receipt Date: 20030909
  Transmission Date: 20060501
  Serious: Yes (Hospitalization)
  Sender: FDA-Public Use
  Company Number: FR-AVENTIS-200313382FR

PATIENT
  Age: 73 Year
  Sex: Female

DRUGS (7)
  1. DAONIL [Suspect]
     Indication: DIABETES MELLITUS NON-INSULIN-DEPENDENT
     Route: 048
     Dates: end: 20030717
  2. DAONIL [Suspect]
     Route: 048
  3. TRIATEC [Suspect]
     Indication: ESSENTIAL HYPERTENSION
     Route: 048
  4. INIPOMP [Suspect]
     Route: 048
     Dates: end: 20030717
  5. GLUCOPHAGE [Suspect]
     Indication: DIABETES MELLITUS NON-INSULIN-DEPENDENT
     Route: 048
     Dates: end: 20030717
  6. SPECIAFOLDINE [Concomitant]
     Indication: ANAEMIA
     Route: 048
  7. ACETAMINOPHEN [Concomitant]
     Route: 048

REACTIONS (7)
  - ANOREXIA [None]
  - CARDIO-RESPIRATORY ARREST [None]
  - DRUG INTERACTION [None]
  - HAEMOLYSIS [None]
  - HYPOGLYCAEMIA [None]
  - NORMOCHROMIC NORMOCYTIC ANAEMIA [None]
  - WEIGHT DECREASED [None]
